FAERS Safety Report 22110690 (Version 2)
Quarter: 2023Q2

REPORT INFORMATION
  Report Type: Report from Study
  Country: BE (occurrence: BE)
  Receive Date: 20230317
  Receipt Date: 20230525
  Transmission Date: 20230722
  Serious: Yes (Hospitalization)
  Sender: FDA-Public Use
  Company Number: BE-SEATTLE GENETICS-2023SGN01947

PATIENT
  Age: 63 Year
  Sex: Female
  Weight: 56 kg

DRUGS (7)
  1. TRASTUZUMAB [Suspect]
     Active Substance: TRASTUZUMAB
     Indication: Breast cancer
     Dosage: 6 MILLIGRAM/KILOGRAM
     Route: 042
     Dates: start: 20230201
  2. CAPECITABINE [Suspect]
     Active Substance: CAPECITABINE
     Indication: Breast cancer
     Dosage: 1500 MILLIGRAM, QD (750 MG, BID ON DAYS 1-14)
     Route: 065
     Dates: start: 20221125, end: 20221209
  3. CAPECITABINE [Suspect]
     Active Substance: CAPECITABINE
     Dosage: 2000 MILLIGRAM/SQ. METER, QD (1000 MG/M2, BID)
     Route: 065
     Dates: start: 20221210
  4. TUCATINIB [Suspect]
     Active Substance: TUCATINIB
     Indication: Breast cancer
     Dosage: 600 MILLIGRAM, QD (300 MG, BID)
     Route: 048
     Dates: start: 20221125
  5. KEPPRA [Concomitant]
     Active Substance: LEVETIRACETAM
     Dosage: 2 GRAM, QD (1 G, BID)
     Route: 065
  6. Befact [Concomitant]
     Dosage: UNK UNK, QD (BID)
     Route: 065
  7. OMEPRAZOLE [Concomitant]
     Active Substance: OMEPRAZOLE
     Dosage: 20 MILLIGRAM, QD
     Route: 065

REACTIONS (1)
  - COVID-19 [Not Recovered/Not Resolved]

NARRATIVE: CASE EVENT DATE: 20230222
